FAERS Safety Report 22602023 (Version 1)
Quarter: 2023Q2

REPORT INFORMATION
  Report Type: Spontaneous
  Country: US (occurrence: US)
  Receive Date: 20230614
  Receipt Date: 20230614
  Transmission Date: 20230722
  Serious: Yes (Other)
  Sender: FDA-Public Use
  Company Number: US-002147023-NVSC2023US131279

PATIENT
  Sex: Female

DRUGS (1)
  1. COSENTYX [Suspect]
     Active Substance: SECUKINUMAB
     Indication: Psoriatic arthropathy
     Dosage: 300 MG, QMO (ADMINISTERED HERSELF 3 SUBCUTANEOUS SHOTS, FROM 2023 TO 2023)
     Route: 058

REACTIONS (2)
  - Aphthous ulcer [Unknown]
  - Lichen planus [Unknown]
